FAERS Safety Report 5273351-9 (Version None)
Quarter: 2007Q1

REPORT INFORMATION
  Report Type: 
  Country: None (occurrence: None)
  Receive Date: 20070319
  Receipt Date: 20070302
  Transmission Date: 20070707
  Serious: Yes (Hospitalization)
  Sender: FDA-Public Use
  Company Number: DSA_29416_2007

PATIENT
  Age: 24 Month
  Sex: Male

DRUGS (1)
  1. LORAZEPAM [Suspect]
     Dosage: 1 MG ONCE PO
     Route: 048
     Dates: start: 20070214, end: 20070214

REACTIONS (4)
  - ACCIDENTAL DRUG INTAKE BY CHILD [None]
  - ACCIDENTAL OVERDOSE [None]
  - GAIT DISTURBANCE [None]
  - VISUAL DISTURBANCE [None]
